FAERS Safety Report 6481542-4 (Version None)
Quarter: 2009Q4

REPORT INFORMATION
  Report Type: 
  Country: None (occurrence: None)
  Receive Date: 20091123
  Receipt Date: 20090818
  Transmission Date: 20100525
  Serious: No
  Sender: FDA-Public Use
  Company Number: 8050852

PATIENT
  Age: 29 Year
  Sex: Female

DRUGS (2)
  1. CIMZIA [Suspect]
     Indication: CROHN'S DISEASE
     Dosage: 400 MG SC
     Route: 058
     Dates: start: 20090408, end: 20090729
  2. PREDNISONE [Concomitant]

REACTIONS (3)
  - DRUG INEFFECTIVE [None]
  - MIGRAINE [None]
  - WEIGHT DECREASED [None]
